FAERS Safety Report 6141176-8 (Version None)
Quarter: 2009Q2

REPORT INFORMATION
  Report Type: 
  Country: None (occurrence: None)
  Receive Date: 20090401
  Receipt Date: 20090401
  Transmission Date: 20091009
  Serious: Yes (Life-Threatening, Hospitalization)
  Sender: FDA-Public Use
  Company Number: None

PATIENT
  Sex: Female

DRUGS (1)
  1. DIPHENOXYLATE HCL + ATROPINE SULFATE [Suspect]

REACTIONS (5)
  - BLOOD PRESSURE DIASTOLIC DECREASED [None]
  - FEELING ABNORMAL [None]
  - INSOMNIA [None]
  - PAIN [None]
  - PALPITATIONS [None]
